FAERS Safety Report 16052620 (Version 1)
Quarter: 2019Q1

REPORT INFORMATION
  Report Type: Spontaneous
  Country: US (occurrence: US)
  Receive Date: 20190308
  Receipt Date: 20190308
  Transmission Date: 20190418
  Serious: Yes (Death)
  Sender: FDA-Public Use
  Company Number: US-TEVA-2019-US-1020475

PATIENT
  Sex: Male

DRUGS (1)
  1. FLUCONAZOLE. [Suspect]
     Active Substance: FLUCONAZOLE
     Indication: HEADACHE
     Dates: start: 201901, end: 201901

REACTIONS (3)
  - Death [Fatal]
  - Drug interaction [Unknown]
  - Prescription drug used without a prescription [Unknown]
